FAERS Safety Report 23768501 (Version 3)
Quarter: 2024Q2

REPORT INFORMATION
  Report Type: Spontaneous
  Country: GR (occurrence: GR)
  Receive Date: 20240422
  Receipt Date: 20240430
  Transmission Date: 20240716
  Serious: No
  Sender: FDA-Public Use
  Company Number: GR-PFIZER INC-PV202400043814

PATIENT
  Age: 12 Year
  Sex: Female
  Weight: 46 kg

DRUGS (1)
  1. GENOTROPIN [Suspect]
     Active Substance: SOMATROPIN
     Indication: Turner^s syndrome
     Dosage: 13 MG REGIMEN PER WEEK (HAS ONE DAY OFF)
     Route: 058

REACTIONS (1)
  - Expired device used [Unknown]
